FAERS Safety Report 9597422 (Version 1)
Quarter: 2013Q4

REPORT INFORMATION
  Report Type: Spontaneous
  Country: US (occurrence: US)
  Receive Date: 20131004
  Receipt Date: 20131004
  Transmission Date: 20140711
  Serious: No
  Sender: FDA-Public Use
  Company Number: US-AMGEN-USASP2013019207

PATIENT
  Age: 49 Year
  Sex: Female
  Weight: 117.1 kg

DRUGS (18)
  1. ENBREL [Suspect]
     Indication: PSORIASIS
     Dosage: 50 MG, QWK
     Route: 058
  2. NEURONTIN [Concomitant]
     Dosage: 100 MG, UNK
  3. DUEXIS [Concomitant]
     Dosage: 800 - 26.6
  4. CYMBALTA [Concomitant]
     Dosage: 20 MG, UNK
  5. PROAIR HFA [Concomitant]
     Dosage: UNK
  6. PROBIOTICS [Concomitant]
     Dosage: UNK
  7. REQUIP [Concomitant]
     Dosage: 5 MG, UNK
  8. LEVOTHYROXINE [Concomitant]
     Dosage: 75 MUG, UNK
  9. ALBUTEROL                          /00139501/ [Concomitant]
     Dosage: 90 MUG, UNK
  10. OXYCONTIN [Concomitant]
     Dosage: 10 MG, UNK
  11. PERCOCET                           /00446701/ [Concomitant]
     Dosage: 5-325 MG, UNK
  12. METOPROLOL TARTRATE [Concomitant]
     Dosage: 50 MG, UNK
  13. FLOMAX                             /00889901/ [Concomitant]
     Dosage: 0.4 MG, UNK
  14. TYLENOL ARTHRITIS [Concomitant]
     Dosage: 650 MG, UNK
  15. OMEGA 3                            /01334101/ [Concomitant]
     Dosage: UNK
  16. MAGNESIUM [Concomitant]
     Dosage: 300 MG, UNK
  17. CALCIUM D                          /00944201/ [Concomitant]
     Dosage: UNK
  18. VITAMIN B12                        /00056201/ [Concomitant]
     Dosage: 100 MUG, UNK

REACTIONS (3)
  - Insomnia [Unknown]
  - Restless legs syndrome [Unknown]
  - Muscle spasms [Unknown]
